APPROVED DRUG PRODUCT: TRANDOLAPRIL AND VERAPAMIL HYDROCHLORIDE
Active Ingredient: TRANDOLAPRIL; VERAPAMIL HYDROCHLORIDE
Strength: 2MG;240MG
Dosage Form/Route: TABLET, EXTENDED RELEASE;ORAL
Application: A079135 | Product #002
Applicant: GLENMARK PHARMACEUTICALS LTD
Approved: May 26, 2010 | RLD: No | RS: No | Type: RX